FAERS Safety Report 24355112 (Version 1)
Quarter: 2024Q3

REPORT INFORMATION
  Report Type: Report from Study
  Country: US (occurrence: US)
  Receive Date: 20240923
  Receipt Date: 20240923
  Transmission Date: 20241016
  Serious: Yes (Hospitalization)
  Sender: JOHNSON AND JOHNSON
  Company Number: US-JNJFOC-20240953852

PATIENT
  Age: 51 Year
  Sex: Female

DRUGS (6)
  1. SPRAVATO [Suspect]
     Active Substance: ESKETAMINE
     Indication: Depression
     Dosage: 56 MG,1 TOTAL DOSES
     Dates: start: 20220208, end: 20220208
  2. SPRAVATO [Suspect]
     Active Substance: ESKETAMINE
     Dosage: 84MG,73 TOTAL DOSES
     Dates: start: 20220210, end: 20230719
  3. SPRAVATO [Suspect]
     Active Substance: ESKETAMINE
     Dosage: 56 MG, 5 TOTAL DOSES
     Dates: start: 20230726, end: 20230823
  4. SPRAVATO [Suspect]
     Active Substance: ESKETAMINE
     Dosage: 84 MG, 7 TOTAL DOSES
     Dates: start: 20230730, end: 20231018
  5. SPRAVATO [Suspect]
     Active Substance: ESKETAMINE
     Dosage: 56 MG, 7 TOTAL DOSES
     Dates: start: 20240528, end: 20240620
  6. SPRAVATO [Suspect]
     Active Substance: ESKETAMINE
     Dosage: 84MG, 12 TOTAL DOSES
     Dates: start: 20240625, end: 20240906

REACTIONS (1)
  - Vomiting [Unknown]

NARRATIVE: CASE EVENT DATE: 20240911
